FAERS Safety Report 8443470-4 (Version None)
Quarter: 2012Q2

REPORT INFORMATION
  Report Type: 
  Country: None (occurrence: None)
  Receive Date: 20120618
  Receipt Date: 20120608
  Transmission Date: 20120825
  Serious: Yes (Other)
  Sender: FDA-Public Use
  Company Number: US-JNJFOC-20120604895

PATIENT
  Sex: Female

DRUGS (5)
  1. OXYCODONE HCL [Suspect]
     Indication: PAIN
     Route: 065
  2. FENTANYL-100 [Suspect]
     Indication: PAIN
     Route: 065
     Dates: start: 20110101
  3. UNKNOWN MEDICATION [Concomitant]
     Indication: BREAKTHROUGH PAIN
  4. DILAUDID [Suspect]
     Indication: PAIN
     Route: 065
  5. DURAGESIC-100 [Suspect]
     Indication: PAIN
     Dosage: 50 OR 75 UG/HR
     Route: 062

REACTIONS (5)
  - CEREBROVASCULAR ACCIDENT [None]
  - HYPERHIDROSIS [None]
  - ABDOMINAL DISCOMFORT [None]
  - MEMORY IMPAIRMENT [None]
  - PRODUCT QUALITY ISSUE [None]
